FAERS Safety Report 5781820-8 (Version None)
Quarter: 2008Q2

REPORT INFORMATION
  Report Type: 
  Country: None (occurrence: None)
  Receive Date: 20080623
  Receipt Date: 20071119
  Transmission Date: 20081010
  Serious: No
  Sender: FDA-Public Use
  Company Number: US-ASTRAZENECA-2007UW26675

PATIENT
  Sex: Female

DRUGS (2)
  1. RHINOCORT [Suspect]
     Indication: NASAL DRYNESS
     Route: 045
  2. RHINOCORT [Suspect]
     Indication: INCREASED UPPER AIRWAY SECRETION
     Route: 045

REACTIONS (2)
  - INCREASED UPPER AIRWAY SECRETION [None]
  - NASAL DRYNESS [None]
